FAERS Safety Report 17186159 (Version 2)
Quarter: 2020Q1

REPORT INFORMATION
  Report Type: Spontaneous
  Country: PL (occurrence: PL)
  Receive Date: 20191220
  Receipt Date: 20200108
  Transmission Date: 20200409
  Serious: Yes (Death, Other)
  Sender: FDA-Public Use
  Company Number: PL-ASTRAZENECA-2019SF82723

PATIENT
  Age: 21589 Day
  Sex: Male

DRUGS (7)
  1. ACARD [Concomitant]
     Active Substance: ASPIRIN
  2. BRILIQUE [Suspect]
     Active Substance: TICAGRELOR
     Indication: ACUTE CORONARY SYNDROME
     Route: 048
     Dates: start: 20191211
  3. BRILIQUE [Suspect]
     Active Substance: TICAGRELOR
     Indication: MYOCARDIAL INFARCTION
     Route: 048
     Dates: start: 20191211
  4. BRILIQUE [Suspect]
     Active Substance: TICAGRELOR
     Indication: MYOCARDIAL INFARCTION
     Route: 048
     Dates: start: 20191212
  5. HEPARIN [Concomitant]
     Active Substance: HEPARIN SODIUM
     Dosage: 7.3 ML BOLUS, THEN 13 ML/H
  6. INTEGRILIN [Concomitant]
     Active Substance: EPTIFIBATIDE
     Dosage: 7.3 ML BOLUS, THEN 13 ML/H
  7. BRILIQUE [Suspect]
     Active Substance: TICAGRELOR
     Indication: ACUTE CORONARY SYNDROME
     Route: 048
     Dates: start: 20191212

REACTIONS (2)
  - Vascular stent thrombosis [Unknown]
  - Cerebral haemorrhage [Fatal]

NARRATIVE: CASE EVENT DATE: 20191212
